FAERS Safety Report 18851891 (Version 1)
Quarter: 2021Q1

REPORT INFORMATION
  Report Type: Spontaneous
  Country: US (occurrence: US)
  Receive Date: 20210205
  Receipt Date: 20210205
  Transmission Date: 20210420
  Serious: Yes (Death, Hospitalization)
  Sender: FDA-Public Use
  Company Number: None

PATIENT
  Sex: Male
  Weight: 98.8 kg

DRUGS (2)
  1. ETOPOSIDE (VP?16) [Suspect]
     Active Substance: ETOPOSIDE
     Dates: end: 20181024
  2. CARBOPLATIN 0MG [Suspect]
     Active Substance: CARBOPLATIN
     Dates: end: 20181022

REACTIONS (3)
  - Unresponsive to stimuli [None]
  - Frequent bowel movements [None]
  - Malaise [None]

NARRATIVE: CASE EVENT DATE: 20210131
